FAERS Safety Report 25179920 (Version 5)
Quarter: 2025Q3

REPORT INFORMATION
  Report Type: Spontaneous
  Country: US (occurrence: US)
  Receive Date: 20250409
  Receipt Date: 20250818
  Transmission Date: 20251020
  Serious: No
  Sender: APOTEX
  Company Number: US-APOTEX-2025AP003989

PATIENT
  Sex: Male

DRUGS (2)
  1. TERIPARATIDE [Suspect]
     Active Substance: TERIPARATIDE
     Indication: Product used for unknown indication
     Dosage: 1 DOSAGE FORM, QD
     Route: 065
     Dates: start: 202503
  2. TERIPARATIDE [Suspect]
     Active Substance: TERIPARATIDE
     Dosage: 1 DOSAGE FORM, QD
     Route: 065
     Dates: start: 202503

REACTIONS (3)
  - Product dose omission issue [Unknown]
  - Product delivery mechanism issue [Unknown]
  - Device leakage [Unknown]

NARRATIVE: CASE EVENT DATE: 20250325
